FAERS Safety Report 23800313 (Version 1)
Quarter: 2024Q2

REPORT INFORMATION
  Report Type: Spontaneous
  Country: BR (occurrence: None)
  Receive Date: 20240430
  Receipt Date: 20240430
  Transmission Date: 20240715
  Serious: Yes (Other)
  Sender: FDA-Public Use
  Company Number: 2024A099550

PATIENT
  Sex: Female

DRUGS (2)
  1. TAGRISSO [Suspect]
     Active Substance: OSIMERTINIB
     Dosage: ONCE
     Route: 048
     Dates: start: 20230925, end: 20240422
  2. TAGRISSO [Suspect]
     Active Substance: OSIMERTINIB
     Dosage: ONCE
     Route: 048

REACTIONS (2)
  - Toxicity to various agents [Unknown]
  - Diarrhoea [Recovering/Resolving]
